FAERS Safety Report 20346791 (Version 1)
Quarter: 2022Q1

REPORT INFORMATION
  Report Type: Spontaneous
  Country: US (occurrence: US)
  Receive Date: 20220118
  Receipt Date: 20220118
  Transmission Date: 20220423
  Serious: No
  Sender: FDA-Public Use
  Company Number: US-VERTEX PHARMACEUTICALS-2022-000464

PATIENT
  Age: 18 Year
  Sex: Female

DRUGS (6)
  1. TRIKAFTA [Suspect]
     Active Substance: ELEXACAFTOR\IVACAFTOR\TEZACAFTOR
     Indication: Cystic fibrosis
     Dosage: 2ORANGE TABS AND 1 BLUE TAB PM
     Route: 048
     Dates: start: 20210211
  2. AZTREONAM [Suspect]
     Active Substance: AZTREONAM
     Indication: Cystic fibrosis
     Dosage: 75 MILLIGRAM, TID
     Dates: start: 20211117
  3. CHOLECALCIFEROL [Concomitant]
     Active Substance: CHOLECALCIFEROL
  4. FASENRA [Concomitant]
     Active Substance: BENRALIZUMAB
  5. AZITHROMYCIN [Concomitant]
     Active Substance: AZITHROMYCIN
  6. KITABIS PAK [Concomitant]
     Active Substance: TOBRAMYCIN

REACTIONS (1)
  - Muscle spasms [Not Recovered/Not Resolved]
